FAERS Safety Report 5267779-0 (Version None)
Quarter: 2007Q1

REPORT INFORMATION
  Report Type: 
  Country: None (occurrence: None)
  Receive Date: 20070316
  Receipt Date: 20070305
  Transmission Date: 20070707
  Serious: Yes (Death)
  Sender: FDA-Public Use
  Company Number: JP-PFIZER INC-2007017649

PATIENT
  Age: 82 Year
  Sex: Female

DRUGS (6)
  1. AMLODIN [Suspect]
     Indication: HYPERTENSION
     Route: 048
     Dates: start: 20060509, end: 20060510
  2. AMLODIN [Suspect]
     Route: 048
     Dates: start: 20060511, end: 20060514
  3. AMLODIN [Suspect]
     Route: 048
     Dates: start: 20060515, end: 20060529
  4. FORSENID [Concomitant]
     Indication: CONSTIPATION
     Route: 048
     Dates: start: 19910101, end: 20060601
  5. HOCHU-EKKI-TO [Concomitant]
     Indication: GASTRITIS
     Route: 048
     Dates: start: 19910101, end: 20060601
  6. LENDORMIN D [Concomitant]
     Indication: INSOMNIA
     Route: 048
     Dates: start: 19910101, end: 20060601

REACTIONS (1)
  - HEPATITIS FULMINANT [None]
